FAERS Safety Report 6258005-4 (Version None)
Quarter: 2009Q3

REPORT INFORMATION
  Report Type: 
  Country: None (occurrence: None)
  Receive Date: 20090702
  Receipt Date: 20090622
  Transmission Date: 20100115
  Serious: Yes (Other)
  Sender: FDA-Public Use
  Company Number: 2009AP002510

PATIENT
  Sex: Female

DRUGS (12)
  1. CLARITHROMYCIN [Suspect]
     Dosage: 250 MG; BID, PO
     Route: 048
     Dates: start: 20081224, end: 20090501
  2. CLINDAMYCIN HCL [Concomitant]
  3. DOXYCYCLINE (DOXYCYCLINE) [Concomitant]
  4. PRAVASTATIN [Concomitant]
  5. CANDESARTAN CILEXETIL [Concomitant]
  6. TIOTROPIUM (TIOTROPIUM) [Concomitant]
  7. RABEPRAZOLE SODIUM [Concomitant]
  8. FLUTICASONE PROPIONATE [Concomitant]
  9. SALMETEROL (SALMETEROL) [Concomitant]
  10. AMLODIPINE BESYLATE [Concomitant]
  11. GLICLAZIDE (GLICLAZIDE) [Concomitant]
  12. METFORMIN HCL [Concomitant]

REACTIONS (5)
  - DIZZINESS [None]
  - MALAISE [None]
  - PRODUCT SUBSTITUTION ISSUE [None]
  - SOMNOLENCE [None]
  - VERTIGO [None]
